FAERS Safety Report 13740815 (Version 2)
Quarter: 2017Q3

REPORT INFORMATION
  Report Type: Spontaneous
  Country: US (occurrence: US)
  Receive Date: 20170711
  Receipt Date: 20170801
  Transmission Date: 20171127
  Serious: Yes (Other)
  Sender: FDA-Public Use
  Company Number: US-PFIZER INC-2017289967

PATIENT
  Age: 73 Year
  Sex: Female

DRUGS (4)
  1. HYDROCORTISONE. [Suspect]
     Active Substance: HYDROCORTISONE
     Indication: CHRONIC MYELOID LEUKAEMIA
     Dosage: UNK, MONTHLY
     Route: 037
  2. BOSUTINIB [Concomitant]
     Active Substance: BOSUTINIB
     Indication: CHRONIC MYELOID LEUKAEMIA
     Dosage: UNK
  3. METHOTREXATE SODIUM. [Suspect]
     Active Substance: METHOTREXATE SODIUM
     Indication: CHRONIC MYELOID LEUKAEMIA
     Dosage: UNK, MONTHLY
     Route: 037
  4. BOSUTINIB [Concomitant]
     Active Substance: BOSUTINIB
     Indication: CENTRAL NERVOUS SYSTEM LEUKAEMIA

REACTIONS (2)
  - CNS ventriculitis [Recovered/Resolved]
  - Bacillus infection [Recovered/Resolved]
